FAERS Safety Report 23587116 (Version 1)
Quarter: 2024Q1

REPORT INFORMATION
  Report Type: Spontaneous
  Country: CH (occurrence: None)
  Receive Date: 20240301
  Receipt Date: 20240301
  Transmission Date: 20240410
  Serious: Yes (Other)
  Sender: FDA-Public Use
  Company Number: 2024A024392

PATIENT

DRUGS (2)
  1. CALQUENCE [Suspect]
     Active Substance: ACALABRUTINIB
     Route: 048
  2. CALQUENCE [Suspect]
     Active Substance: ACALABRUTINIB
     Route: 048
     Dates: start: 20230320

REACTIONS (13)
  - Renal impairment [Unknown]
  - Ear pain [Unknown]
  - Symptom recurrence [Unknown]
  - Internal haemorrhage [Unknown]
  - Heart rate irregular [Unknown]
  - Bone pain [Unknown]
  - Toothache [Unknown]
  - Pain [Unknown]
  - Lymphadenopathy [Unknown]
  - Blood test abnormal [Unknown]
  - Drug intolerance [Unknown]
  - Pruritus [Unknown]
  - Off label use [Unknown]
